FAERS Safety Report 4341008-4 (Version None)
Quarter: 2004Q2

REPORT INFORMATION
  Report Type: 
  Country: None (occurrence: None)
  Receive Date: 20040413
  Receipt Date: 20040401
  Transmission Date: 20050107
  Serious: Yes (Hospitalization)
  Sender: FDA-Public Use
  Company Number: JP-JNJFOC-20040400561

PATIENT
  Age: 58 Year
  Sex: Male
  Weight: 50 kg

DRUGS (14)
  1. REMICADE [Suspect]
     Indication: RHEUMATOID ARTHRITIS
     Dosage: 3 MG/KG, 1 IN 1 AS NECESSARY, INTRAVENOUS DRIP
     Route: 041
     Dates: start: 20030929, end: 20030929
  2. REMICADE [Suspect]
     Indication: RHEUMATOID ARTHRITIS
     Dosage: 3 MG/KG, 1 IN 1 AS NECESSARY, INTRAVENOUS DRIP
     Route: 041
     Dates: start: 20031016, end: 20031016
  3. REMICADE [Suspect]
     Indication: RHEUMATOID ARTHRITIS
     Dosage: 3 MG/KG, 1 IN 1 AS NECESSARY, INTRAVENOUS DRIP
     Route: 041
     Dates: start: 20031113, end: 20031113
  4. REMICADE [Suspect]
     Indication: RHEUMATOID ARTHRITIS
     Dosage: 3 MG/KG, 1 IN 1 AS NECESSARY, INTRAVENOUS DRIP
     Route: 041
     Dates: start: 20040107, end: 20040107
  5. REMICADE [Suspect]
     Indication: RHEUMATOID ARTHRITIS
     Dosage: 3 MG/KG, 1 IN 1 AS NECESSARY, INTRAVENOUS DRIP
     Route: 041
     Dates: start: 20040304, end: 20040304
  6. RHEUMATREX [Suspect]
     Indication: RHEUMATOID ARTHRITIS
     Dosage: 5 MG, IN 1 WEEK, ORAL; 6 MG  IN 1 WEEK, ORAL;  8 MG,  IN 1 WEEK, ORAL
     Route: 048
     Dates: start: 19980521, end: 19991104
  7. RHEUMATREX [Suspect]
     Indication: RHEUMATOID ARTHRITIS
     Dosage: 5 MG, IN 1 WEEK, ORAL; 6 MG  IN 1 WEEK, ORAL;  8 MG,  IN 1 WEEK, ORAL
     Route: 048
     Dates: start: 19991105, end: 20000406
  8. RHEUMATREX [Suspect]
     Indication: RHEUMATOID ARTHRITIS
     Dosage: 5 MG, IN 1 WEEK, ORAL; 6 MG  IN 1 WEEK, ORAL;  8 MG,  IN 1 WEEK, ORAL
     Route: 048
     Dates: start: 20000407
  9. PREDNISOLONE [Suspect]
     Indication: RHEUMATOID ARTHRITIS
     Dosage: 7.5 MG,  IN 1 DAY, ORAL; 5 MG,  IN 1 DAY, ORAL
     Route: 048
     Dates: start: 19970901, end: 20031113
  10. PREDNISOLONE [Suspect]
     Indication: RHEUMATOID ARTHRITIS
     Dosage: 7.5 MG,  IN 1 DAY, ORAL; 5 MG,  IN 1 DAY, ORAL
     Route: 048
     Dates: start: 20031114
  11. LOXONIN (LOXOPROFEN SODIUM) [Concomitant]
  12. MOBIC [Concomitant]
  13. CALCIUM LACTATE (CALCIUM LACTATE) [Concomitant]
  14. ONEALFA (ALFACALCIDOL) [Concomitant]

REACTIONS (10)
  - BLOOD CREATINE INCREASED [None]
  - BLOOD POTASSIUM INCREASED [None]
  - DEHYDRATION [None]
  - DISSEMINATED INTRAVASCULAR COAGULATION [None]
  - DRUG INTERACTION [None]
  - PNEUMONIA BACTERIAL [None]
  - PROTEIN TOTAL DECREASED [None]
  - RED BLOOD CELL COUNT DECREASED [None]
  - RENAL INJURY [None]
  - WHITE BLOOD CELL COUNT ABNORMAL [None]
